FAERS Safety Report 5533314-2 (Version None)
Quarter: 2007Q4

REPORT INFORMATION
  Report Type: 
  Country: None (occurrence: None)
  Receive Date: 20071128
  Receipt Date: 20071114
  Transmission Date: 20080405
  Serious: Yes (Other)
  Sender: FDA-Public Use
  Company Number: 07-001899

PATIENT
  Age: 18 Year
  Sex: Female

DRUGS (7)
  1. FEMCON FE [Suspect]
     Indication: HAEMORRHAGE
     Dosage: 0.4MG/35MCG, QD, ORAL, THREE TO FOUR TIME DAILY, ORAL
     Route: 048
     Dates: start: 20070801, end: 20070801
  2. FEMCON FE [Suspect]
     Indication: HAEMORRHAGE
     Dosage: 0.4MG/35MCG, QD, ORAL, THREE TO FOUR TIME DAILY, ORAL
     Route: 048
     Dates: start: 20070801, end: 20070901
  3. ZOLOFT [Concomitant]
  4. HALDOL [Concomitant]
  5. PAXIL [Concomitant]
  6. IRON (IRON) [Concomitant]
  7. CODEINE SUL TAB [Concomitant]

REACTIONS (7)
  - ANAEMIA [None]
  - BLOOD IRON DECREASED [None]
  - DRUG INEFFECTIVE FOR UNAPPROVED INDICATION [None]
  - DYSPNOEA [None]
  - HYPERHIDROSIS [None]
  - PAIN IN EXTREMITY [None]
  - VISION BLURRED [None]
